FAERS Safety Report 5382609-4 (Version None)
Quarter: 2007Q3

REPORT INFORMATION
  Report Type: 
  Country: None (occurrence: None)
  Receive Date: 20070710
  Receipt Date: 20070702
  Transmission Date: 20080115
  Serious: Yes (Other)
  Sender: FDA-Public Use
  Company Number: PHNR2007AU01314

PATIENT
  Sex: Female

DRUGS (4)
  1. COMBIPATCH [Suspect]
     Indication: HORMONE REPLACEMENT THERAPY
     Route: 062
  2. TAMBOCOR [Concomitant]
  3. LANOXIN [Concomitant]
  4. URSO FALK [Concomitant]

REACTIONS (4)
  - ATRIAL FIBRILLATION [None]
  - HEART RATE INCREASED [None]
  - HEPATIC ENZYME INCREASED [None]
  - HEPATIC STEATOSIS [None]
